FAERS Safety Report 25852611 (Version 2)
Quarter: 2025Q4

REPORT INFORMATION
  Report Type: Spontaneous
  Country: EU (occurrence: EU)
  Receive Date: 20250926
  Receipt Date: 20251002
  Transmission Date: 20260118
  Serious: Yes (Congenital Anomaly)
  Sender: FERRING
  Company Number: EU-EMB-M202400516-1

PATIENT

DRUGS (6)
  1. PROGESTERONE [Suspect]
     Active Substance: PROGESTERONE
     Indication: Prophylaxis of abortion
     Dosage: 400 MG, 0.33 DAY
     Route: 064
     Dates: start: 202310, end: 202312
  2. SUMATRIPTAN [Suspect]
     Active Substance: SUMATRIPTAN
     Indication: Migraine
     Dosage: 50 MG AS NECESSARY
     Route: 064
     Dates: start: 202309, end: 202405
  3. ASPIRIN [Suspect]
     Active Substance: ASPIRIN
     Indication: Prophylaxis
     Dosage: 100 MG, 1 TIME DAILY
     Route: 064
     Dates: start: 202309, end: 202405
  4. HEPARIN [Concomitant]
     Active Substance: HEPARIN SODIUM
     Indication: Factor V Leiden mutation
     Dosage: 40 MG, 1 TIME DAILY
     Route: 064
     Dates: start: 202309, end: 202405
  5. LEVOTHYROXINE SODIUM [Concomitant]
     Active Substance: LEVOTHYROXINE SODIUM
     Indication: Hypothyroidism
     Dosage: 50 UG, 1 TIME DAILY
     Route: 064
     Dates: start: 202309, end: 202405
  6. PERTUSSIS VACCINE [Concomitant]
     Active Substance: PERTUSSIS VACCINE
     Indication: Immunisation
     Dosage: ~GW 30 (APPROXIMATELY 3 WEEKS BEFORE DELIVERY)
     Route: 064
     Dates: start: 202404, end: 202404

REACTIONS (2)
  - Cardiac septal defect [Unknown]
  - Foetal exposure during pregnancy [Unknown]
